FAERS Safety Report 8982605 (Version 1)
Quarter: 2012Q4

REPORT INFORMATION
  Report Type: 
  Country: US (occurrence: US)
  Receive Date: 20121221
  Receipt Date: 20121221
  Transmission Date: 20130627
  Serious: No
  Sender: FDA-Public Use
  Company Number: US-JHP PHARMACEUTICALS, LLC-JHP201200300

PATIENT
  Age: 46 Year
  Sex: Male
  Weight: 69.84 kg

DRUGS (8)
  1. APLISOL DIAGNOSTIC ANTIGEN [Suspect]
     Indication: TUBERCULIN TEST
     Dosage: UNK, single
     Dates: start: 20120126, end: 20120126
  2. LIQUITEARS [Concomitant]
     Dosage: UNK UNK, prn
     Route: 047
     Dates: start: 2011
  3. LORATADINE [Concomitant]
     Indication: HYPERSENSITIVITY
     Dosage: 10 mg, prn
     Route: 048
     Dates: start: 2005
  4. DOCUSATE SODIUM [Concomitant]
     Dosage: 100 mg, prn
     Route: 048
     Dates: start: 2005
  5. TOLNAFTATE [Concomitant]
     Dosage: UNK
     Route: 061
     Dates: start: 2002
  6. MULTIVITAMIN [Concomitant]
     Dosage: UNK
     Route: 048
     Dates: start: 2011
  7. FLUNISOLIDE [Concomitant]
     Dosage: 25 ?g, prn
     Route: 045
     Dates: start: 2011, end: 2012
  8. HALLS [Concomitant]
     Dosage: UNK, prn
     Dates: start: 2012

REACTIONS (6)
  - Influenza like illness [Recovered/Resolved]
  - Fatigue [Recovering/Resolving]
  - Arthralgia [Recovering/Resolving]
  - Arrhythmia [Recovered/Resolved]
  - Dyspnoea [Recovered/Resolved]
  - Injection site reaction [Recovered/Resolved]
